FAERS Safety Report 24209780 (Version 2)
Quarter: 2024Q3

REPORT INFORMATION
  Report Type: Spontaneous
  Country: US (occurrence: US)
  Receive Date: 20240814
  Receipt Date: 20240913
  Transmission Date: 20241017
  Serious: No
  Sender: PFIZER
  Company Number: US-PFIZER INC-PV202300075969

PATIENT
  Age: 65 Year
  Sex: Female

DRUGS (2)
  1. PREMARIN [Suspect]
     Active Substance: ESTROGENS, CONJUGATED
     Indication: Hormone replacement therapy
     Dosage: 0.625 MG, 1X/DAY (TAKE 1 TABLET (0.625 MG) BY MOUTH ONCE DAILY)
     Route: 048
  2. PREMARIN [Suspect]
     Active Substance: ESTROGENS, CONJUGATED
     Indication: Cervix disorder

REACTIONS (3)
  - Back disorder [Unknown]
  - Impaired driving ability [Unknown]
  - Gait inability [Unknown]
